FAERS Safety Report 4436028-5 (Version None)
Quarter: 2004Q3

REPORT INFORMATION
  Report Type: 
  Country: None (occurrence: None)
  Receive Date: 20040826
  Receipt Date: 20040817
  Transmission Date: 20050211
  Serious: Yes (Hospitalization)
  Sender: FDA-Public Use
  Company Number: 2004-BP-07041RO

PATIENT
  Age: 55 Year
  Sex: Female
  Weight: 55 kg

DRUGS (5)
  1. PREDNISONE TAB [Suspect]
     Indication: NON-HODGKIN'S LYMPHOMA
     Dosage: 100 MG
     Dates: start: 20040519, end: 20040704
  2. GEMCITABINE HYDROCHLORIDE - IV (GEMCITABINE) (GEMCITABINE HYDROCHLORID [Suspect]
     Indication: NON-HODGKIN'S LYMPHOMA
     Dosage: 1300 MG, IV
     Route: 042
     Dates: start: 20040519, end: 20040707
  3. CYCLOPHOSPHAMIDE [Suspect]
     Indication: NON-HODGKIN'S LYMPHOMA
     Dosage: 1200 MG
     Dates: start: 20040519, end: 20040630
  4. DOXORUBICIN (DOXORUBICIN) [Suspect]
     Indication: NON-HODGKIN'S LYMPHOMA
     Dosage: 80 MG
     Dates: start: 20040519, end: 20040630
  5. VINCRISTINE [Suspect]
     Indication: NON-HODGKIN'S LYMPHOMA
     Dosage: 2 MG
     Dates: start: 20040519, end: 20040630

REACTIONS (2)
  - CANDIDIASIS [None]
  - INTERSTITIAL LUNG DISEASE [None]
